FAERS Safety Report 17495936 (Version 2)
Quarter: 2020Q1

REPORT INFORMATION
  Report Type: Spontaneous
  Country: US (occurrence: US)
  Receive Date: 20200303
  Receipt Date: 20200316
  Transmission Date: 20200409
  Serious: No
  Sender: FDA-Public Use
  Company Number: US-AMGEN INC.-USASP2020035624

PATIENT
  Age: 50 Year
  Sex: Female
  Weight: 108.84 kg

DRUGS (17)
  1. MONTELUKAST [Concomitant]
     Active Substance: MONTELUKAST SODIUM
     Dosage: 10 MILLIGRAM, QHS (BEDTIME)
     Route: 048
     Dates: start: 20190619
  2. AIMOVIG [Suspect]
     Active Substance: ERENUMAB-AOOE
     Indication: MIGRAINE PROPHYLAXIS
     Dosage: 70 MILLIGRAM, QMO
     Route: 065
     Dates: start: 201912, end: 202001
  3. TROKENDI XR [Concomitant]
     Active Substance: TOPIRAMATE
     Dosage: 25 MILLIGRAM, QD
     Route: 048
     Dates: start: 20200227
  4. ALBUTEROL HFA [Concomitant]
     Active Substance: ALBUTEROL SULFATE
     Indication: DYSPNOEA
     Dosage: 90 MICROGRAM, AS NECESSARY (EVERY 6 HOURS AS NEEDED)
     Dates: start: 20200103
  5. PHENERGAN [Concomitant]
     Active Substance: PROMETHAZINE HYDROCHLORIDE
     Indication: NAUSEA
     Dosage: 25 MILLIGRAM (EVERY 8 HOURS AS NEEDED)
     Route: 048
     Dates: start: 20191217
  6. TESSALON [Concomitant]
     Active Substance: BENZONATATE
     Dosage: 100 MILLIGRAM  (3 TIMES DAILY)
     Route: 048
     Dates: start: 20200103
  7. ARMOUR THYROID [Concomitant]
     Active Substance: THYROID, PORCINE
     Dosage: 90 MILLIGRAM, QD
     Route: 048
     Dates: start: 20191202
  8. ULTRAM [Concomitant]
     Active Substance: TRAMADOL HYDROCHLORIDE
     Indication: PAIN
     Dosage: 50 MILLIGRAM, AS NECESSARY (EVERY 8 HOURS AS NEEDED)
     Route: 048
     Dates: start: 20200106
  9. NICODERM CQ [Concomitant]
     Active Substance: NICOTINE
     Dosage: 7 MILLIGRAM (1 PATCH TO SKIN AS DIRECTED EVERY 24 HOURS)
     Route: 062
     Dates: start: 20200106
  10. LIORESAL [Concomitant]
     Active Substance: BACLOFEN
     Indication: PAIN
     Dosage: 10 MILLIGRAM (3 TIMES DAILY AS NEEDED)
     Route: 048
     Dates: start: 20191217
  11. ZANTAC [Concomitant]
     Active Substance: RANITIDINE HYDROCHLORIDE
     Dosage: 300 MILLIGRAM, BID
     Route: 048
     Dates: start: 20191202
  12. UBROGEPANT [Concomitant]
     Active Substance: UBROGEPANT
     Indication: MIGRAINE
     Dosage: 50 MILLIGRAM, AS NECESSARY (MAY REPEAT IN 2 HOURS IF NEEDED. MAX DOSE 200 MG IN 24 HOURS)
     Dates: start: 20200227
  13. INDERAL [Concomitant]
     Active Substance: PROPRANOLOL HYDROCHLORIDE
     Dosage: 20 MILLIGRAM, QD (3 TIMES DAILY)
     Route: 048
     Dates: start: 20200106
  14. ALBUTEROL HFA [Concomitant]
     Active Substance: ALBUTEROL SULFATE
     Indication: WHEEZING
  15. FIORICET [Concomitant]
     Active Substance: ACETAMINOPHEN\BUTALBITAL\CAFFEINE
     Indication: MIGRAINE
     Dosage: 50-325-40 MG TABLET, AS NECESSARY
     Route: 048
     Dates: start: 20191217
  16. AIMOVIG [Suspect]
     Active Substance: ERENUMAB-AOOE
     Dosage: 140 MILLIGRAM, QMO
     Route: 065
     Dates: start: 202002, end: 202002
  17. CITALOPRAM [Concomitant]
     Active Substance: CITALOPRAM HYDROBROMIDE
     Dosage: 40 MILLIGRAM, QD (30 TABLET, 1 TABLET DAILY)
     Route: 048
     Dates: start: 20200306

REACTIONS (2)
  - Alopecia [Unknown]
  - Toothache [Unknown]

NARRATIVE: CASE EVENT DATE: 20200227
